FAERS Safety Report 7068927-2 (Version None)
Quarter: 2010Q4

REPORT INFORMATION
  Report Type: 
  Country: None (occurrence: None)
  Receive Date: 20101028
  Receipt Date: 20101014
  Transmission Date: 20110411
  Serious: Yes (Other)
  Sender: FDA-Public Use
  Company Number: PHHY2010US68782

PATIENT
  Sex: Male

DRUGS (1)
  1. TASIGNA [Suspect]
     Indication: GASTRIC CANCER
     Dosage: 300 MG, BID
     Route: 048
     Dates: start: 20100730, end: 20101014

REACTIONS (1)
  - ABDOMINAL MASS [None]
